FAERS Safety Report 13176397 (Version 6)
Quarter: 2019Q4

REPORT INFORMATION
  Report Type: Report from Study
  Country: US (occurrence: US)
  Receive Date: 20170201
  Receipt Date: 20191210
  Transmission Date: 20200122
  Serious: Yes (Life-Threatening, Hospitalization, Other)
  Sender: FDA-Public Use
  Company Number: PHEH2017US003191

PATIENT
  Age: 73 Year
  Sex: Female

DRUGS (1)
  1. ENTRESTO [Suspect]
     Active Substance: SACUBITRIL\VALSARTAN
     Indication: CARDIAC FAILURE CONGESTIVE
     Dosage: 1 DF (SACUBITRIL 97 MG/ VALSARTAN 103 MG), BID
     Route: 048

REACTIONS (24)
  - Feeling abnormal [Unknown]
  - Peripheral swelling [Unknown]
  - Vertigo [Unknown]
  - Dyspnoea [Unknown]
  - Thrombosis [Unknown]
  - Vomiting [Unknown]
  - Thyroid function test abnormal [Unknown]
  - Tinnitus [Unknown]
  - Diarrhoea [Unknown]
  - Visual impairment [Unknown]
  - Wrong technique in product usage process [Unknown]
  - Hypovitaminosis [Unknown]
  - Cardiac disorder [Unknown]
  - Myocardial infarction [Unknown]
  - Gastroenteritis viral [Unknown]
  - Blood potassium abnormal [Unknown]
  - Blood pressure decreased [Unknown]
  - Fluid retention [Unknown]
  - Drug ineffective [Unknown]
  - Swelling [Unknown]
  - Fall [Unknown]
  - Ejection fraction decreased [Unknown]
  - Vitamin D increased [Unknown]
  - Asthenia [Unknown]

NARRATIVE: CASE EVENT DATE: 201805
